FAERS Safety Report 18386182 (Version 2)
Quarter: 2020Q4

REPORT INFORMATION
  Report Type: Spontaneous
  Country: US (occurrence: US)
  Receive Date: 20201015
  Receipt Date: 20201016
  Transmission Date: 20210114
  Serious: Yes (Other)
  Sender: FDA-Public Use
  Company Number: US-PFIZER INC-2020398689

PATIENT
  Age: 64 Year
  Sex: Female
  Weight: 62.6 kg

DRUGS (1)
  1. XELJANZ XR [Suspect]
     Active Substance: TOFACITINIB CITRATE
     Indication: SYSTEMIC LUPUS ERYTHEMATOSUS
     Dosage: 11 MG, 1X/DAY (11 MG ONCE A DAY BY MOUTH)
     Route: 048
     Dates: start: 202009

REACTIONS (5)
  - Off label use [Unknown]
  - Muscular weakness [Unknown]
  - Monoplegia [Unknown]
  - Product use in unapproved indication [Unknown]
  - Muscle spasms [Unknown]

NARRATIVE: CASE EVENT DATE: 202009
